FAERS Safety Report 16682386 (Version 4)
Quarter: 2019Q3

REPORT INFORMATION
  Report Type: Report from Study
  Country: None (occurrence: BE)
  Receive Date: 20190808
  Receipt Date: 20190906
  Transmission Date: 20191004
  Serious: Yes (Hospitalization)
  Sender: FDA-Public Use
  Company Number: BE-ABBVIE-19K-013-2879179-00

PATIENT
  Sex: Male

DRUGS (9)
  1. SEROQUEL [Concomitant]
     Active Substance: QUETIAPINE FUMARATE
     Indication: PRODUCT USED FOR UNKNOWN INDICATION
  2. DUODOPA [Suspect]
     Active Substance: CARBIDOPA\LEVODOPA
     Dosage: MD=2.4ML, CD=3.2ML/HR DURING 16HRS, ED=1ML
     Route: 050
     Dates: start: 20190828
  3. DUODOPA [Suspect]
     Active Substance: CARBIDOPA\LEVODOPA
     Dosage: MD=2.4ML, CD=3ML/HR DURING 16HRS, ED=1.2ML
     Route: 050
     Dates: start: 20190716, end: 20190807
  4. PROLOPA HBS [Concomitant]
     Active Substance: BENSERAZIDE\LEVODOPA
     Indication: PRODUCT USED FOR UNKNOWN INDICATION
  5. DUODOPA [Suspect]
     Active Substance: CARBIDOPA\LEVODOPA
     Indication: PARKINSON^S DISEASE
     Route: 050
     Dates: start: 20120625, end: 20121110
  6. DUODOPA [Suspect]
     Active Substance: CARBIDOPA\LEVODOPA
     Dosage: MD=5.2ML, CD=4.2ML/HR DURING 16HRS, ED=2ML, ND=3ML/HR DURING 8HRS
     Route: 050
     Dates: start: 20121110, end: 20121114
  7. DUODOPA [Suspect]
     Active Substance: CARBIDOPA\LEVODOPA
     Dosage: DOSES CONTINUOUSLY MONITORED AND ADAPTED
     Route: 050
     Dates: start: 20121114, end: 20190716
  8. DUODOPA [Suspect]
     Active Substance: CARBIDOPA\LEVODOPA
     Dosage: MD=2.4ML, CD=3ML/HR DURING 16HRS, ED=1ML
     Route: 050
     Dates: start: 20190807, end: 20190828
  9. PROLOPA HBS [Concomitant]
     Active Substance: BENSERAZIDE\LEVODOPA
     Dates: start: 20120718

REACTIONS (5)
  - Fall [Recovered/Resolved]
  - Muscle rigidity [Not Recovered/Not Resolved]
  - Mobility decreased [Unknown]
  - Hypertension [Unknown]
  - Hip fracture [Unknown]

NARRATIVE: CASE EVENT DATE: 20190803
